FAERS Safety Report 20541222 (Version 1)
Quarter: 2022Q1

REPORT INFORMATION
  Report Type: Spontaneous
  Country: JP (occurrence: JP)
  Receive Date: 20220302
  Receipt Date: 20220302
  Transmission Date: 20220424
  Serious: Yes (Other)
  Sender: FDA-Public Use
  Company Number: JP-JNJFOC-20211031381

PATIENT
  Age: 86 Year
  Sex: Male

DRUGS (9)
  1. ZYTIGA [Suspect]
     Active Substance: ABIRATERONE ACETATE
     Indication: Prostate cancer
     Dosage: IN THE MORNING
     Route: 048
     Dates: start: 20210713
  2. ZYTIGA [Suspect]
     Active Substance: ABIRATERONE ACETATE
     Dosage: DOSE UNKNOWN,IN THE MORNING AND EVENING
     Route: 048
     Dates: start: 2021, end: 2021
  3. PREDNISOLONE [Suspect]
     Active Substance: PREDNISOLONE
     Indication: Product used for unknown indication
     Route: 065
  4. PREDNISOLONE [Suspect]
     Active Substance: PREDNISOLONE
     Dosage: DOSE UNKNOWN,IN THE MORNING AND EVENING
     Route: 065
     Dates: start: 2021, end: 2021
  5. CASODEX [Suspect]
     Active Substance: BICALUTAMIDE
     Indication: Product used for unknown indication
     Dosage: DOSE UNKNOWN
     Route: 048
  6. FLUTAMIDE [Suspect]
     Active Substance: FLUTAMIDE
     Indication: Product used for unknown indication
     Dosage: DOSE UNKNOWN
     Route: 065
  7. ENZALUTAMIDE [Suspect]
     Active Substance: ENZALUTAMIDE
     Dosage: DOSE UNKNOWN
     Route: 048
  8. JANUVIA [Concomitant]
     Active Substance: SITAGLIPTIN PHOSPHATE
     Indication: Diabetes mellitus
     Route: 065
  9. JANUVIA [Concomitant]
     Active Substance: SITAGLIPTIN PHOSPHATE
     Indication: Diabetes mellitus
     Route: 065
     Dates: start: 20211012

REACTIONS (3)
  - Dementia [Unknown]
  - Blood glucose increased [Not Recovered/Not Resolved]
  - Accidental overdose [Unknown]

NARRATIVE: CASE EVENT DATE: 20210101
